FAERS Safety Report 26087209 (Version 1)
Quarter: 2025Q4

REPORT INFORMATION
  Report Type: Spontaneous
  Country: US (occurrence: US)
  Receive Date: 20251125
  Receipt Date: 20251125
  Transmission Date: 20260117
  Serious: Yes (Life-Threatening, Hospitalization)
  Sender: MYLAN
  Company Number: US-MYLANLABS-2025M1099409

PATIENT
  Age: 38 Year
  Sex: Male

DRUGS (4)
  1. HALOPERIDOL [Suspect]
     Active Substance: HALOPERIDOL
     Indication: Psychomotor hyperactivity
     Dosage: UNK
  2. DEXMEDETOMIDINE [Suspect]
     Active Substance: DEXMEDETOMIDINE
     Indication: Psychomotor hyperactivity
     Dosage: UNK (INFUSION)
  3. PHENOBARBITAL [Suspect]
     Active Substance: PHENOBARBITAL
     Indication: Psychomotor hyperactivity
     Dosage: UNK
  4. KETAMINE [Concomitant]
     Active Substance: KETAMINE
     Indication: Psychomotor hyperactivity
     Dosage: UNK

REACTIONS (2)
  - Drug ineffective [Unknown]
  - Product use in unapproved indication [Unknown]
